FAERS Safety Report 25875021 (Version 1)
Quarter: 2025Q4

REPORT INFORMATION
  Report Type: Spontaneous
  Country: EU (occurrence: EU)
  Receive Date: 20251002
  Receipt Date: 20251002
  Transmission Date: 20260118
  Serious: Yes (Death, Other)
  Sender: BAXTER
  Company Number: None

PATIENT
  Age: 60 Year
  Sex: Female

DRUGS (2)
  1. PROPOFOL [Suspect]
     Active Substance: PROPOFOL
     Indication: Poisoning deliberate
     Dosage: UNK
     Route: 042
     Dates: start: 20241023, end: 20241023
  2. MIDAZOLAM [Suspect]
     Active Substance: MIDAZOLAM
     Indication: Poisoning deliberate
     Dosage: UNK
     Route: 042
     Dates: start: 20241023, end: 20241023

REACTIONS (1)
  - Poisoning deliberate [Fatal]

NARRATIVE: CASE EVENT DATE: 20241023
